FAERS Safety Report 19520122 (Version 1)
Quarter: 2021Q3

REPORT INFORMATION
  Report Type: Spontaneous
  Country: US (occurrence: US)
  Receive Date: 20210712
  Receipt Date: 20210712
  Transmission Date: 20211014
  Serious: No
  Sender: FDA-Public Use
  Company Number: US-GLAXOSMITHKLINE-US2021150325

PATIENT
  Sex: Female
  Weight: 87.09 kg

DRUGS (1)
  1. ANORO ELLIPTA [Suspect]
     Active Substance: UMECLIDINIUM BROMIDE\VILANTEROL TRIFENATATE
     Indication: PULMONARY THROMBOSIS
     Dosage: 1 PUFF(S), QD
     Route: 055
     Dates: start: 201904, end: 201904

REACTIONS (2)
  - Product use in unapproved indication [Unknown]
  - Adverse drug reaction [Unknown]
